FAERS Safety Report 5413165-X (Version None)
Quarter: 2007Q3

REPORT INFORMATION
  Report Type: 
  Country: None (occurrence: None)
  Receive Date: 20070810
  Receipt Date: 20070713
  Transmission Date: 20080115
  Serious: Yes (Other)
  Sender: FDA-Public Use
  Company Number: 2007RR-08720

PATIENT
  Age: 19 Year
  Sex: Female

DRUGS (6)
  1. MINOCYCLINE HYDROCHLORIDE [Suspect]
     Indication: ACNE
     Dosage: 100 MG, QD
  2. TRETINOIN (TRETINOIN) GEL, 0.025% [Concomitant]
  3. BENZAMYCIN (BENZOYL PEROXIDE/ERYTHROMYCIN) GEL [Concomitant]
  4. BENZOYL PEROXIDE (BENZOYL PEROXIDE) GEL, 10% [Concomitant]
  5. TRIPHASIC ETHINYL ESTRADIOL/NORGESTIMATE (TRIPHASIC ETHINYL ESTRADIO/N [Concomitant]
  6. PREDNISOLONE [Concomitant]

REACTIONS (1)
  - POLYARTERITIS NODOSA [None]
